FAERS Safety Report 20878326 (Version 2)
Quarter: 2022Q4

REPORT INFORMATION
  Report Type: Spontaneous
  Country: FR (occurrence: FR)
  Receive Date: 20220526
  Receipt Date: 20221213
  Transmission Date: 20230113
  Serious: Yes (Hospitalization, Other)
  Sender: FDA-Public Use
  Company Number: FR-GLAXOSMITHKLINE-FR2022EME082281

PATIENT

DRUGS (4)
  1. BELANTAMAB MAFODOTIN [Suspect]
     Active Substance: BELANTAMAB MAFODOTIN
     Indication: Plasma cell myeloma
     Dosage: 2.5 MG/KG, Z (EVERY 3 WEEKS)
     Dates: start: 20201019, end: 20220511
  2. BELANTAMAB MAFODOTIN [Suspect]
     Active Substance: BELANTAMAB MAFODOTIN
     Dosage: 140 MG
     Dates: start: 20210901
  3. BELANTAMAB MAFODOTIN [Suspect]
     Active Substance: BELANTAMAB MAFODOTIN
     Dosage: 2.5 MG/KG, Z
     Dates: start: 20211013
  4. BELANTAMAB MAFODOTIN [Suspect]
     Active Substance: BELANTAMAB MAFODOTIN
     Dosage: 2.5 MG/KG, Z
     Dates: start: 20220511

REACTIONS (15)
  - Pulmonary embolism [Unknown]
  - Neutropenia [Unknown]
  - Pulmonary embolism [Unknown]
  - Arthralgia [Unknown]
  - Pruritus [Unknown]
  - Vision blurred [Unknown]
  - Periorbital haematoma [Unknown]
  - Dyspnoea [Unknown]
  - COVID-19 [Unknown]
  - Lung disorder [Unknown]
  - Keratitis [Unknown]
  - Asthenia [Not Recovered/Not Resolved]
  - Arthralgia [Unknown]
  - Erythema of eyelid [Unknown]
  - Eye pain [Unknown]

NARRATIVE: CASE EVENT DATE: 20201110
